FAERS Safety Report 5208617-1 (Version None)
Quarter: 2007Q1

REPORT INFORMATION
  Report Type: 
  Country: None (occurrence: None)
  Receive Date: 20070115
  Receipt Date: 20070111
  Transmission Date: 20070707
  Serious: Yes (Other)
  Sender: FDA-Public Use
  Company Number: GB-ALLERGAN-0700360US

PATIENT
  Age: 28 Year
  Sex: Female

DRUGS (3)
  1. PREDNISOLONE ACETATE [Suspect]
     Indication: DRUG USE FOR UNKNOWN INDICATION
  2. ERYTHROMYCIN [Suspect]
     Indication: DRUG USE FOR UNKNOWN INDICATION
  3. INSULIN [Suspect]
     Indication: DRUG USE FOR UNKNOWN INDICATION

REACTIONS (2)
  - INTRA-UTERINE DEATH [None]
  - OLIGOHYDRAMNIOS [None]
